FAERS Safety Report 9494588 (Version 3)
Quarter: 2013Q4

REPORT INFORMATION
  Report Type: Spontaneous
  Country: IN (occurrence: IN)
  Receive Date: 20130903
  Receipt Date: 20131104
  Transmission Date: 20140711
  Serious: Yes (Death)
  Sender: FDA-Public Use
  Company Number: IN-NOVOPROD-384315

PATIENT
  Sex: Male

DRUGS (2)
  1. ACTRAPID [Suspect]
     Indication: TYPE 1 DIABETES MELLITUS
     Dosage: 39 U, QD (16+7+16)
     Route: 058
     Dates: start: 20120204, end: 20130722
  2. INSULATARD [Suspect]
     Indication: TYPE 1 DIABETES MELLITUS
     Dosage: 17 U, QD (9+0+8)
     Route: 058
     Dates: start: 20120204, end: 20130722

REACTIONS (1)
  - Road traffic accident [Fatal]
